FAERS Safety Report 8090957-2 (Version None)
Quarter: 2012Q1

REPORT INFORMATION
  Report Type: 
  Country: None (occurrence: None)
  Receive Date: 20120128
  Receipt Date: 20110802
  Transmission Date: 20120608
  Serious: Yes (Hospitalization)
  Sender: FDA-Public Use
  Company Number: US-ABBOTT-11P-163-0842812-00

PATIENT
  Age: 56 Year
  Sex: Female

DRUGS (16)
  1. BYSTOLIC [Concomitant]
     Indication: HYPERTENSION
  2. LASIX [Concomitant]
     Indication: SWELLING
     Dosage: 20 MG DAILY AS NEEDED
  3. NITROGLYCERIN [Concomitant]
     Indication: CHEST PAIN
  4. LISINOPRIL [Concomitant]
     Indication: HYPERTENSION
  5. CYMBALTA [Concomitant]
     Indication: DEPRESSION
  6. HUMIRA [Suspect]
     Indication: ANKYLOSING SPONDYLITIS
     Dates: start: 20110101
  7. PROVENTIL [Concomitant]
     Indication: ASTHMA
     Route: 055
  8. ZOLPIDEM [Concomitant]
     Indication: INSOMNIA
     Dosage: 10 MG QHS
  9. HYDROXYZINE [Concomitant]
     Indication: PRURITUS
     Dosage: 25 MG BID PRN
  10. LISINOPRIL [Concomitant]
     Indication: PRODUCT USED FOR UNKNOWN INDICATION
  11. CARBAZOLE [Concomitant]
     Indication: PSORIASIS
  12. FAMOTIDINE [Concomitant]
     Indication: GASTROOESOPHAGEAL REFLUX DISEASE
  13. NORVASC [Concomitant]
     Indication: HYPERTENSION
  14. SINGULAIR [Concomitant]
     Indication: ASTHMA
     Dosage: DAILY AT HS
  15. LORAZEPAM [Concomitant]
     Indication: ANXIETY
  16. FLEXERIL [Concomitant]
     Indication: MUSCLE SPASMS

REACTIONS (5)
  - INJECTION SITE SWELLING [None]
  - PNEUMONIA [None]
  - BRONCHITIS [None]
  - DYSPNOEA [None]
  - INJECTION SITE HAEMORRHAGE [None]
